FAERS Safety Report 20311005 (Version 7)
Quarter: 2022Q1

REPORT INFORMATION
  Report Type: Report from Study
  Country: FR (occurrence: FR)
  Receive Date: 20220107
  Receipt Date: 20220323
  Transmission Date: 20220424
  Serious: Yes (Hospitalization, Other)
  Sender: FDA-Public Use
  Company Number: FR-BRISTOL-MYERS SQUIBB COMPANY-BMS-2022-000838

PATIENT
  Age: 49 Year
  Sex: Male
  Weight: 62 kg

DRUGS (15)
  1. RELATLIMAB [Suspect]
     Active Substance: RELATLIMAB
     Indication: Squamous cell carcinoma of head and neck
     Dosage: 160 MILLIGRAM
     Route: 042
     Dates: start: 20211116
  2. LINRODOSTAT MESYLATE [Suspect]
     Active Substance: LINRODOSTAT MESYLATE
     Indication: Squamous cell carcinoma of head and neck
     Dosage: 100 MILLIGRAM
     Route: 065
     Dates: start: 20211116
  3. NIVOLUMAB [Suspect]
     Active Substance: NIVOLUMAB
     Indication: Squamous cell carcinoma of head and neck
     Dosage: 480 MILLIGRAM
     Route: 042
     Dates: start: 20211116
  4. RELATLIMAB [Suspect]
     Active Substance: RELATLIMAB
     Indication: Squamous cell carcinoma of head and neck
     Dosage: 160 MILLIGRAM
     Route: 042
     Dates: start: 20211116
  5. RELATLIMAB [Suspect]
     Active Substance: RELATLIMAB
     Indication: Squamous cell carcinoma of head and neck
     Dosage: 160 MILLIGRAM
     Route: 042
     Dates: start: 20211116
  6. NIVOLUMAB [Suspect]
     Active Substance: NIVOLUMAB
     Indication: Squamous cell carcinoma of head and neck
     Dosage: 480 MILLIGRAM
     Route: 042
     Dates: start: 20211116
  7. OXSYNIA [Concomitant]
     Indication: Oral pain
     Dosage: 30 MILLIGRAM
     Route: 048
     Dates: start: 20211116
  8. OXYCODONE [Concomitant]
     Active Substance: OXYCODONE
     Indication: Hypoaesthesia
     Dosage: 40 MILLIGRAM
     Route: 048
     Dates: start: 20211116
  9. DOLIPRANE [Concomitant]
     Active Substance: ACETAMINOPHEN
     Indication: Oral pain
     Dosage: 4 GRAM
     Route: 048
     Dates: start: 20211116
  10. AMITRIPTYLINE HYDROCHLORIDE [Concomitant]
     Active Substance: AMITRIPTYLINE HYDROCHLORIDE
     Indication: Product used for unknown indication
     Dosage: 1 DOSAGE FORM=10 UNIT NOS,
     Route: 048
     Dates: start: 20211116
  11. KETOPROFEN [Concomitant]
     Active Substance: KETOPROFEN
     Indication: Oral pain
     Dosage: 200 MILLIGRAM
     Route: 048
     Dates: start: 20211116
  12. KETOPROFEN [Concomitant]
     Active Substance: KETOPROFEN
     Indication: Hypoaesthesia
  13. ACUPAN [Concomitant]
     Active Substance: NEFOPAM HYDROCHLORIDE
     Indication: Oral pain
     Dosage: 20 MILLIGRAM
     Route: 048
     Dates: start: 20211116
  14. MODERNA COVID-19 VACCINE [Concomitant]
     Active Substance: ELASOMERAN
     Indication: Prophylaxis
     Dosage: UNK
     Route: 065
     Dates: start: 20210601
  15. MODERNA COVID-19 VACCINE [Concomitant]
     Active Substance: ELASOMERAN
     Dosage: UNK
     Route: 065
     Dates: start: 20210629

REACTIONS (1)
  - Hepatic cytolysis [Not Recovered/Not Resolved]

NARRATIVE: CASE EVENT DATE: 20220106
